FAERS Safety Report 24034472 (Version 4)
Quarter: 2024Q3

REPORT INFORMATION
  Report Type: Report from Study
  Country: CO (occurrence: CO)
  Receive Date: 20240701
  Receipt Date: 20240923
  Transmission Date: 20241017
  Serious: Yes (Other)
  Sender: SANOFI AVENTIS
  Company Number: CO-SA-SAC20240613001314

PATIENT
  Age: 32 Year
  Sex: Male
  Weight: 66 kg

DRUGS (2)
  1. ALEMTUZUMAB [Suspect]
     Active Substance: ALEMTUZUMAB
     Indication: Multiple sclerosis
     Dosage: 12 MG, QD
     Route: 040
     Dates: start: 20231213, end: 20231217
  2. OLANZAPINE [Concomitant]
     Active Substance: OLANZAPINE
     Indication: Insomnia
     Dosage: UNK
     Dates: start: 2023, end: 2024

REACTIONS (25)
  - Suicidal ideation [Unknown]
  - Brain oedema [Unknown]
  - Multiple sclerosis relapse [Recovering/Resolving]
  - Blindness [Recovering/Resolving]
  - Mobility decreased [Recovering/Resolving]
  - Malaise [Recovering/Resolving]
  - Speech disorder [Recovering/Resolving]
  - Stress [Recovering/Resolving]
  - Fall [Recovering/Resolving]
  - Eye irritation [Recovering/Resolving]
  - Dry eye [Recovering/Resolving]
  - Ejaculation disorder [Recovering/Resolving]
  - Sleep disorder due to a general medical condition [Recovering/Resolving]
  - Musculoskeletal chest pain [Not Recovered/Not Resolved]
  - Vision blurred [Unknown]
  - Basophil percentage increased [Unknown]
  - Red blood cell count increased [Unknown]
  - Blood creatinine decreased [Unknown]
  - Depressed mood [Recovering/Resolving]
  - Pain in extremity [Recovering/Resolving]
  - Arthralgia [Not Recovered/Not Resolved]
  - Headache [Recovered/Resolved]
  - Fatigue [Unknown]
  - Lymphocyte count decreased [Unknown]
  - Lymphocyte percentage decreased [Unknown]

NARRATIVE: CASE EVENT DATE: 20240101
